FAERS Safety Report 5594556-3 (Version None)
Quarter: 2008Q1

REPORT INFORMATION
  Report Type: 
  Country: None (occurrence: None)
  Receive Date: 20080117
  Receipt Date: 20080107
  Transmission Date: 20080703
  Serious: Yes (Death)
  Sender: FDA-Public Use
  Company Number: US-WYE-H02059508

PATIENT
  Age: 42 Year
  Sex: Male

DRUGS (2)
  1. PROPRANOLOL HYDROCHLORIDE [Suspect]
     Dosage: UNSPECIFIED
     Dates: start: 20060101
  2. DILTIAZEM HCL [Suspect]
     Dosage: UNSPECIFIED, ^ACUTE^

REACTIONS (2)
  - CARDIAC ARREST [None]
  - INTENTIONAL OVERDOSE [None]
